FAERS Safety Report 8902414 (Version 6)
Quarter: 2013Q1

REPORT INFORMATION
  Report Type: Spontaneous
  Country: US (occurrence: US)
  Receive Date: 20121112
  Receipt Date: 20130321
  Transmission Date: 20140127
  Serious: Yes (Hospitalization, Disabling, Other)
  Sender: FDA-Public Use
  Company Number: US-MERCK-1211USA002767

PATIENT
  Sex: Female

DRUGS (8)
  1. FOSAMAX [Suspect]
     Indication: OSTEOPOROSIS
     Dosage: 70 MG, QW
     Route: 048
     Dates: start: 20060803, end: 20080622
  2. FOSAMAX [Suspect]
     Indication: OSTEOPENIA
  3. BONIVA [Suspect]
     Indication: OSTEOPOROSIS
     Dosage: 150 MG, UNK
     Dates: start: 20090804, end: 20110614
  4. ACTONEL [Suspect]
     Indication: OSTEOPOROSIS
     Dosage: 35 MG, UNK
     Dates: start: 20051106, end: 20060802
  5. VITAMINS (UNSPECIFIED) [Concomitant]
     Indication: PRODUCT USED FOR UNKNOWN INDICATION
  6. OSTEO-BI-FLEX [Concomitant]
     Indication: PRODUCT USED FOR UNKNOWN INDICATION
     Dosage: UNK, QW
  7. LIPITOR [Concomitant]
     Indication: HYPERLIPIDAEMIA
     Dosage: UNK
     Dates: start: 1990
  8. LEVOXYL [Concomitant]
     Indication: HYPOTHYROIDISM
     Dosage: UNK
     Dates: start: 1990

REACTIONS (23)
  - Femur fracture [Unknown]
  - Femur fracture [Not Recovered/Not Resolved]
  - Low turnover osteopathy [Not Recovered/Not Resolved]
  - Osteoporosis [Not Recovered/Not Resolved]
  - Stress fracture [Not Recovered/Not Resolved]
  - Intramedullary rod insertion [Unknown]
  - Depression [Unknown]
  - Anxiety [Unknown]
  - Meniscus injury [Unknown]
  - Osteoarthritis [Not Recovered/Not Resolved]
  - Cyst [Unknown]
  - Bone lesion [Unknown]
  - Fall [Unknown]
  - Rib fracture [Unknown]
  - Fracture nonunion [Unknown]
  - Atrioventricular block first degree [Unknown]
  - Bundle branch block right [Unknown]
  - Rhinitis allergic [Unknown]
  - Arthroscopy [Unknown]
  - Open reduction of fracture [Recovering/Resolving]
  - Thyroidectomy [Unknown]
  - Fracture nonunion [Not Recovered/Not Resolved]
  - Patellectomy [Unknown]
